FAERS Safety Report 5909540-7 (Version None)
Quarter: 2008Q4

REPORT INFORMATION
  Report Type: 
  Country: None (occurrence: None)
  Receive Date: 20081002
  Receipt Date: 20080916
  Transmission Date: 20090506
  Serious: Yes (Hospitalization)
  Sender: FDA-Public Use
  Company Number: DSA_32461_2008

PATIENT
  Sex: Male

DRUGS (5)
  1. LORAZEPAM [Suspect]
     Indication: DRUG USE FOR UNKNOWN INDICATION
     Dosage: (3 MG QD ORAL), (2 MG QD ORAL)
     Route: 048
     Dates: start: 20020101, end: 20080101
  2. CORDARONE [Suspect]
     Indication: DRUG USE FOR UNKNOWN INDICATION
     Dosage: (200 MG 6X/WEEK ORAL)
     Route: 048
  3. FLOXYFRAL (FLOXYFRAL - FLUVOXAMINE MALEATE) (NOT SPECIFIED) [Suspect]
     Indication: DEPRESSION
     Dosage: (50 MG QD ORAL)
     Route: 048
  4. SINTROM [Suspect]
     Indication: DRUG USE FOR UNKNOWN INDICATION
     Dosage: (DF ORAL), (1 MG QD ORAL)
     Route: 048
     Dates: start: 20080101, end: 20080101
  5. TADENAN /00628801/ (TADENAN - PYGEUM AFRICANUM) (NOT SPECIFIED) [Suspect]
     Indication: BENIGN PROSTATIC HYPERPLASIA
     Dosage: (50 MG BID ORAL)
     Route: 048

REACTIONS (12)
  - ABDOMINAL RIGIDITY [None]
  - AMAUROSIS [None]
  - BODY TEMPERATURE DECREASED [None]
  - CHEST INJURY [None]
  - CHEST PAIN [None]
  - DYSPNOEA [None]
  - FALL [None]
  - HEART RATE DECREASED [None]
  - LUNG INJURY [None]
  - RIB FRACTURE [None]
  - SOMNOLENCE [None]
  - WOUND [None]
